FAERS Safety Report 7790895-6 (Version None)
Quarter: 2011Q3

REPORT INFORMATION
  Report Type: 
  Country: None (occurrence: None)
  Receive Date: 20110930
  Receipt Date: 20110921
  Transmission Date: 20111222
  Serious: Yes (Hospitalization)
  Sender: FDA-Public Use
  Company Number: US-ASTRAZENECA-2011SE56744

PATIENT
  Sex: Male

DRUGS (7)
  1. CRESTOR [Concomitant]
  2. SEROQUEL XR [Suspect]
     Route: 048
  3. SEROQUEL XR [Suspect]
     Route: 048
  4. NEXIUM [Concomitant]
  5. SEROQUEL XR [Suspect]
     Indication: SLEEP DISORDER
     Route: 048
  6. IBUPROFEN [Concomitant]
     Indication: TOOTHACHE
  7. SEROQUEL XR [Suspect]
     Indication: HALLUCINATION, AUDITORY
     Route: 048

REACTIONS (8)
  - RHEUMATOID ARTHRITIS [None]
  - HALLUCINATION, AUDITORY [None]
  - OFF LABEL USE [None]
  - DRUG PRESCRIBING ERROR [None]
  - GLAUCOMA [None]
  - DRUG DOSE OMISSION [None]
  - ASTHENIA [None]
  - DRUG INEFFECTIVE [None]
